FAERS Safety Report 6405879-X (Version None)
Quarter: 2009Q4

REPORT INFORMATION
  Report Type: 
  Country: None (occurrence: None)
  Receive Date: 20091019
  Receipt Date: 20091008
  Transmission Date: 20100525
  Serious: Yes (Other)
  Sender: FDA-Public Use
  Company Number: GB-BRISTOL-MYERS SQUIBB COMPANY-14819783

PATIENT
  Age: 61 Year
  Sex: Male

DRUGS (9)
  1. GLUCOPHAGE [Suspect]
     Dates: start: 20081201
  2. SIMVASTATIN [Concomitant]
  3. GLICLAZIDE [Concomitant]
  4. AMITRIPTYLINE [Concomitant]
  5. LANSOPRAZOLE [Concomitant]
  6. RAMIPRIL [Concomitant]
  7. ATENOLOL [Concomitant]
  8. ASPIRIN [Concomitant]
  9. CLOPIDOGREL BISULFATE [Concomitant]
     Dosage: NOW STOPPED.

REACTIONS (1)
  - MYOCARDIAL INFARCTION [None]
